FAERS Safety Report 21848152 (Version 2)
Quarter: 2023Q2

REPORT INFORMATION
  Report Type: Report from Study
  Country: US (occurrence: US)
  Receive Date: 20230111
  Receipt Date: 20230505
  Transmission Date: 20230721
  Serious: Yes (Hospitalization)
  Sender: FDA-Public Use
  Company Number: US-SERVIER-S22013396

PATIENT

DRUGS (9)
  1. PEGASPARGASE [Suspect]
     Active Substance: PEGASPARGASE
     Indication: Acute lymphocytic leukaemia
     Dosage: 2000 IU/M2, ON D4 AND 43
     Route: 042
     Dates: start: 20221020, end: 20221020
  2. PEGASPARGASE [Suspect]
     Active Substance: PEGASPARGASE
     Dosage: 2000 IU/M2, ON D4 AND 43
     Route: 042
     Dates: start: 20221204, end: 20221204
  3. CYCLOPHOSPHAMIDE [Suspect]
     Active Substance: CYCLOPHOSPHAMIDE
     Indication: Acute lymphocytic leukaemia
     Dosage: 1000 MG/M2, ON D29
     Route: 042
     Dates: start: 20221116, end: 20221116
  4. CYTARABINE [Suspect]
     Active Substance: CYTARABINE
     Indication: Acute lymphocytic leukaemia
     Dosage: 75 MG/M2, ON D29-32 AND 36-39
     Route: 042
     Dates: start: 20221116, end: 20221126
  5. DEXAMETHASONE [Suspect]
     Active Substance: DEXAMETHASONE
     Indication: Acute lymphocytic leukaemia
     Dosage: 5 MG, ON D 1-7 AND 15-21
     Route: 048
     Dates: start: 20221017, end: 20221106
  6. DOXORUBICIN HYDROCHLORIDE [Suspect]
     Active Substance: DOXORUBICIN HYDROCHLORIDE
     Indication: Acute lymphocytic leukaemia
     Dosage: 25 MG/M2, ON D 1, 8, 15
     Route: 042
     Dates: start: 20221017, end: 20221031
  7. METHOTREXATE [Suspect]
     Active Substance: METHOTREXATE
     Indication: Acute lymphocytic leukaemia
     Dosage: 15 MG, ON D1, 29, 36
     Route: 037
     Dates: start: 20221017, end: 20221123
  8. THIOGUANINE [Suspect]
     Active Substance: THIOGUANINE
     Indication: Acute lymphocytic leukaemia
     Dosage: 60 MG/M2, ON D29-42
     Route: 048
     Dates: start: 20221116, end: 20221204
  9. VINCRISTINE SULFATE [Suspect]
     Active Substance: VINCRISTINE SULFATE
     Indication: Acute lymphocytic leukaemia
     Dosage: 2 MG, ON D1. 8, 15, 43 AND 50
     Route: 042
     Dates: start: 20221017, end: 20221210

REACTIONS (2)
  - Febrile neutropenia [Recovered/Resolved]
  - Neutropenic colitis [Recovered/Resolved]

NARRATIVE: CASE EVENT DATE: 20221214
